FAERS Safety Report 5883124-1 (Version None)
Quarter: 2008Q3

REPORT INFORMATION
  Report Type: 
  Country: None (occurrence: None)
  Receive Date: 20080913
  Receipt Date: 20080829
  Transmission Date: 20090109
  Serious: No
  Sender: FDA-Public Use
  Company Number: US-ABBOTT-08P-163-0473342-00

PATIENT
  Sex: Male

DRUGS (14)
  1. HUMIRA [Suspect]
     Indication: RHEUMATOID ARTHRITIS
     Route: 058
  2. HUMIRA [Suspect]
     Indication: CROHN'S DISEASE
  3. LANSOPRAZOLE [Concomitant]
     Indication: GASTROOESOPHAGEAL REFLUX PROPHYLAXIS
     Route: 048
  4. MESALAMINE [Concomitant]
     Indication: CROHN'S DISEASE
     Route: 048
  5. URSODEOXYCHOLIC ACID [Concomitant]
     Indication: HEPATITIS
     Route: 048
  6. LORTAB [Concomitant]
     Indication: PAIN
     Route: 048
  7. DICYCLOMINE HCL [Concomitant]
     Indication: IRRITABLE BOWEL SYNDROME
     Route: 048
  8. OXYCODONE HCL [Concomitant]
     Indication: PAIN
     Route: 048
  9. FOLIC ACID [Concomitant]
     Indication: DRUG USE FOR UNKNOWN INDICATION
     Dosage: 1 MG DAILY
     Route: 048
  10. TOCOPHERYL ACETATE [Concomitant]
     Indication: DRUG USE FOR UNKNOWN INDICATION
     Dosage: 1000 UNITS DAILY
     Route: 048
  11. VIGRAN [Concomitant]
     Indication: DRUG USE FOR UNKNOWN INDICATION
     Dosage: 1 TAB DAILY
     Route: 048
  12. PAROXETINE HCL [Concomitant]
     Indication: EMOTIONAL DISORDER
     Dosage: DAILY
     Route: 048
  13. ALPRAZOLAM [Concomitant]
     Indication: EMOTIONAL DISORDER
     Dosage: DAILY
     Route: 048
  14. CLONAZEPAM [Concomitant]
     Indication: EMOTIONAL DISORDER
     Route: 048

REACTIONS (4)
  - ARTHRALGIA [None]
  - DRUG INEFFECTIVE [None]
  - INJECTION SITE HAEMATOMA [None]
  - INJECTION SITE HAEMORRHAGE [None]
